FAERS Safety Report 23817592 (Version 1)
Quarter: 2024Q2

REPORT INFORMATION
  Report Type: Spontaneous
  Country: US (occurrence: US)
  Receive Date: 20240505
  Receipt Date: 20240505
  Transmission Date: 20240715
  Serious: No
  Sender: FDA-Public Use
  Company Number: US-BAUSCHBL-2024BNL026085

PATIENT
  Sex: Female

DRUGS (2)
  1. METHAZOLAMIDE [Suspect]
     Active Substance: METHAZOLAMIDE
     Indication: Product used for unknown indication
     Route: 048
  2. METHAZOLAMIDE [Suspect]
     Active Substance: METHAZOLAMIDE
     Route: 048

REACTIONS (2)
  - Wrong technique in product usage process [Unknown]
  - Prescribed underdose [Unknown]
